FAERS Safety Report 12147367 (Version 1)
Quarter: 2016Q1

REPORT INFORMATION
  Report Type: Spontaneous
  Country: DK (occurrence: DK)
  Receive Date: 20160304
  Receipt Date: 20160304
  Transmission Date: 20160526
  Serious: Yes (Hospitalization)
  Sender: FDA-Public Use
  Company Number: DK-TEVA-627522ISR

PATIENT
  Sex: Male

DRUGS (2)
  1. METOPROLOL SUCCINATE TEVA [Suspect]
     Active Substance: METOPROLOL SUCCINATE
     Indication: HYPERTENSION
     Dosage: ONLY TOOK HALF A TABLET 12,5 MG
     Dates: start: 20160118
  2. LECASTAD [Concomitant]
     Indication: CARDIAC DISORDER

REACTIONS (10)
  - Nightmare [Unknown]
  - Nausea [Unknown]
  - Insomnia [Unknown]
  - Loss of consciousness [Recovered/Resolved]
  - Hallucination [Unknown]
  - Nocturia [Unknown]
  - Intentional product use issue [Unknown]
  - Dizziness [Unknown]
  - Blood pressure increased [Unknown]
  - Fear [Unknown]
